FAERS Safety Report 13398776 (Version 1)
Quarter: 2017Q2

REPORT INFORMATION
  Report Type: Spontaneous
  Country: SI (occurrence: SI)
  Receive Date: 20170403
  Receipt Date: 20170403
  Transmission Date: 20170830
  Serious: Yes (Other)
  Sender: FDA-Public Use
  Company Number: SI-AMGEN-SVNSP2017048284

PATIENT
  Age: 67 Year
  Sex: Male

DRUGS (7)
  1. OXALIPLATIN. [Concomitant]
     Active Substance: OXALIPLATIN
     Indication: ADENOCARCINOMA OF COLON
     Dosage: UNK
     Dates: start: 20150728
  2. FOLINIC ACID [Concomitant]
     Active Substance: LEUCOVORIN
     Indication: ADENOCARCINOMA OF COLON
     Dosage: UNK
     Dates: start: 20150728
  3. PANITUMUMAB [Suspect]
     Active Substance: PANITUMUMAB
     Indication: ADENOCARCINOMA OF COLON
     Dosage: UNK
     Route: 065
     Dates: start: 20150728
  4. BEVACIZUMAB [Concomitant]
     Active Substance: BEVACIZUMAB
     Indication: ADENOCARCINOMA OF COLON
     Dosage: UNK
     Dates: start: 20160714
  5. 5-FU [Concomitant]
     Active Substance: FLUOROURACIL
     Indication: ADENOCARCINOMA OF COLON
     Dosage: UNK
     Dates: start: 20150728
  6. XELIRI [Concomitant]
     Indication: ADENOCARCINOMA OF COLON
     Dosage: UNK
     Dates: start: 20160714
  7. IRINOTECAN [Concomitant]
     Active Substance: IRINOTECAN
     Dosage: UNK

REACTIONS (12)
  - Polyneuropathy [Unknown]
  - Carbohydrate antigen 19-9 increased [Unknown]
  - Septic shock [Unknown]
  - Malignant neoplasm progression [Recovering/Resolving]
  - Skin induration [Unknown]
  - Skin toxicity [Unknown]
  - Basal cell carcinoma [Unknown]
  - Carcinoembryonic antigen increased [Unknown]
  - Blood lactate dehydrogenase increased [Unknown]
  - Paronychia [Unknown]
  - Febrile neutropenia [Unknown]
  - Skin erosion [Unknown]

NARRATIVE: CASE EVENT DATE: 201512
